FAERS Safety Report 8515956-5 (Version None)
Quarter: 2012Q3

REPORT INFORMATION
  Report Type: 
  Country: None (occurrence: None)
  Receive Date: 20120705
  Receipt Date: 20120626
  Transmission Date: 20120928
  Serious: Yes (Other)
  Sender: FDA-Public Use
  Company Number: 2012SP035847

PATIENT
  Age: 68 Year
  Sex: Male
  Weight: 54 kg

DRUGS (6)
  1. PEG-INTRON [Suspect]
     Indication: HEPATITIS C
     Dosage: 1.5 MCG/KG;QW;PO 1 MCG/KG;QW;PO
     Route: 048
     Dates: start: 20120410
  2. PEG-INTRON [Suspect]
     Indication: HEPATITIS C
     Dosage: 1.5 MCG/KG;QW;PO 1 MCG/KG;QW;PO
     Route: 048
     Dates: start: 20120403, end: 20120409
  3. REBETOL [Suspect]
     Indication: HEPATITIS C
     Dosage: 600 MG;QD;PO
     Route: 048
     Dates: start: 20120403
  4. ALLOPURINOL [Concomitant]
  5. TELAVIC (ANTIVIRALS NOS) [Suspect]
     Indication: HEPATITIS C
     Dosage: 2250 MG;QD;PO
     Route: 048
     Dates: start: 20120403
  6. NERISONA [Concomitant]

REACTIONS (5)
  - BLOOD CREATININE INCREASED [None]
  - RASH [None]
  - LIP PAIN [None]
  - HYPERURICAEMIA [None]
  - ENANTHEMA [None]
